FAERS Safety Report 4777108-4 (Version None)
Quarter: 2005Q3

REPORT INFORMATION
  Report Type: 
  Country: None (occurrence: None)
  Receive Date: 20050915
  Receipt Date: 20050901
  Transmission Date: 20060218
  Serious: Yes (Hospitalization)
  Sender: FDA-Public Use
  Company Number: 216018

PATIENT
  Age: 78 Year
  Sex: Male
  Weight: 66 kg

DRUGS (8)
  1. MABTHERA (RITUXIMAB) CONC FOR SOLUTION FOR INFUSION [Suspect]
     Indication: CHRONIC LYMPHOCYTIC LEUKAEMIA
     Dosage: 670 MG, Q28D, INTRAVENOUS
     Route: 042
     Dates: start: 20050621
  2. FLUDARABINE PHOSPHATE [Suspect]
     Indication: CHRONIC LYMPHOCYTIC LEUKAEMIA
     Dosage: 45 MG, QDX3D/28DC, INTRAVENOUS
     Route: 042
     Dates: start: 20050622
  3. CYCLOPHOSPHAMIDE [Suspect]
     Indication: CHRONIC LYMPHOCYTIC LEUKAEMIA
     Dosage: 450 MG, QDX3D/28DC, INTRAVENOUS
     Route: 042
     Dates: start: 20050622
  4. OXAZEPAM [Concomitant]
  5. ASPIRIN [Concomitant]
  6. BACTRIM DS [Concomitant]
  7. VALACYCLOVIR HCL [Concomitant]
  8. ALLOPURINOL [Concomitant]

REACTIONS (7)
  - ATRIAL FIBRILLATION [None]
  - DIZZINESS [None]
  - FEBRILE NEUTROPENIA [None]
  - HAEMOGLOBIN DECREASED [None]
  - HIATUS HERNIA [None]
  - LUNG HYPERINFLATION [None]
  - MALAISE [None]
